FAERS Safety Report 5355701-8 (Version None)
Quarter: 2007Q2

REPORT INFORMATION
  Report Type: 
  Country: None (occurrence: None)
  Receive Date: 20070530
  Receipt Date: 20061010
  Transmission Date: 20071010
  Serious: Yes (Hospitalization)
  Sender: FDA-Public Use
  Company Number: US200610001888

PATIENT
  Sex: Male

DRUGS (2)
  1. CYMBALTA [Suspect]
     Indication: DEPRESSION SUICIDAL
     Dosage: 120 MG
  2. ZYPREXA [Suspect]
     Indication: DEPRESSION SUICIDAL
     Dosage: 15 MG

REACTIONS (1)
  - SUICIDAL IDEATION [None]
